FAERS Safety Report 6933840-5 (Version None)
Quarter: 2010Q3

REPORT INFORMATION
  Report Type: 
  Country: None (occurrence: None)
  Receive Date: 20100820
  Receipt Date: 20100806
  Transmission Date: 20110219
  Serious: Yes (Hospitalization)
  Sender: FDA-Public Use
  Company Number: GB-ELI_LILLY_AND_COMPANY-GB201008000224

PATIENT
  Sex: Male
  Weight: 84 kg

DRUGS (4)
  1. GEMCITABINE HCL [Suspect]
     Indication: NON-SMALL CELL LUNG CANCER
     Dosage: 1976 MG, UNKNOWN
     Route: 065
     Dates: start: 20100609
  2. CISPLATIN [Suspect]
     Indication: NON-SMALL CELL LUNG CANCER
     Dosage: 115 MG, UNKNOWN
     Route: 065
     Dates: start: 20100609
  3. TRANEXAMIC ACID [Concomitant]
     Indication: HAEMOPTYSIS
     Dates: start: 20100407
  4. VITAMIN B-12 [Concomitant]
     Dosage: UNK, OTHER
     Dates: start: 20050102

REACTIONS (1)
  - SEPSIS [None]
